FAERS Safety Report 12407030 (Version 1)
Quarter: 2016Q2

REPORT INFORMATION
  Report Type: Spontaneous
  Country: FR (occurrence: FR)
  Receive Date: 20160526
  Receipt Date: 20160526
  Transmission Date: 20160815
  Serious: Yes (Hospitalization)
  Sender: FDA-Public Use
  Company Number: FR-ASTRAZENECA-2016SE54439

PATIENT
  Age: 18832 Day
  Sex: Male

DRUGS (9)
  1. SIMVASTATINE [Concomitant]
     Active Substance: SIMVASTATIN
  2. LOPERAMIDE [Concomitant]
     Active Substance: LOPERAMIDE
  3. BRILIQUE [Suspect]
     Active Substance: TICAGRELOR
     Indication: ACUTE CORONARY SYNDROME
     Route: 048
     Dates: start: 20131130, end: 20131130
  4. ASPEGIC [Suspect]
     Active Substance: ASPIRIN DL-LYSINE
     Indication: ACUTE CORONARY SYNDROME
     Route: 048
     Dates: start: 20131130, end: 20131130
  5. CORTANCYL [Concomitant]
     Active Substance: PREDNISONE
  6. SPECIAFOLDINE [Concomitant]
     Active Substance: FOLIC ACID
  7. SINTROM [Suspect]
     Active Substance: ACENOCOUMAROL
     Indication: PULMONARY EMBOLISM
     Dosage: 0.5 DF ALTERNATLY WITH 0.25 DF
     Route: 048
     Dates: end: 20131130
  8. CACIT [Concomitant]
     Active Substance: CALCIUM\VITAMIN D
  9. BRICANYL [Concomitant]
     Active Substance: TERBUTALINE SULFATE

REACTIONS (3)
  - Epistaxis [Recovered/Resolved]
  - Angina pectoris [Recovered/Resolved]
  - Anaemia [Recovered/Resolved]

NARRATIVE: CASE EVENT DATE: 20131130
